FAERS Safety Report 5810983-0 (Version None)
Quarter: 2008Q3

REPORT INFORMATION
  Report Type: 
  Country: None (occurrence: None)
  Receive Date: 20080710
  Receipt Date: 20080630
  Transmission Date: 20090109
  Serious: Yes (Hospitalization)
  Sender: FDA-Public Use
  Company Number: CHNY2008FR02555

PATIENT
  Age: 70 Year
  Sex: Female

DRUGS (3)
  1. SCOPOLAMINE [Suspect]
     Indication: PROPHYLAXIS AGAINST MOTION SICKNESS
     Dosage: TRANSDERMAL
     Route: 062
     Dates: start: 20080418, end: 20080430
  2. FOSINOPRIL SODIUM [Concomitant]
  3. SERC [Concomitant]

REACTIONS (10)
  - ASTHENIA [None]
  - CEREBELLAR SYNDROME [None]
  - COUGH [None]
  - DECREASED APPETITE [None]
  - DIARRHOEA [None]
  - DRUG TOXICITY [None]
  - DYSSTASIA [None]
  - INCORRECT DRUG ADMINISTRATION DURATION [None]
  - PYREXIA [None]
  - VERTIGO [None]
